FAERS Safety Report 22000955 (Version 1)
Quarter: 2023Q1

REPORT INFORMATION
  Report Type: Spontaneous
  Country: US (occurrence: None)
  Receive Date: 20230214
  Receipt Date: 20230214
  Transmission Date: 20230418
  Serious: Yes (Hospitalization)
  Sender: FDA-Public Use
  Company Number: None

PATIENT
  Age: 83 Year
  Sex: Female
  Weight: 64.86 kg

DRUGS (24)
  1. IMATINIB [Suspect]
     Active Substance: IMATINIB
     Indication: Malignant connective tissue neoplasm
     Dosage: FREQUENCY : DAILY;?
     Route: 048
     Dates: start: 202206
  2. IMATINIB [Suspect]
     Active Substance: IMATINIB
     Indication: Malignant connective tissue neoplasm
  3. ALLOPURINOL [Concomitant]
     Active Substance: ALLOPURINOL
  4. AMLODIPINE [Concomitant]
     Active Substance: AMLODIPINE BESYLATE
  5. CLONIDINE [Concomitant]
     Active Substance: CLONIDINE
  6. DICYCLOMINE [Concomitant]
     Active Substance: DICYCLOMINE HYDROCHLORIDE
  7. ELIQUIS [Concomitant]
     Active Substance: APIXABAN
  8. FAMOTIDINE [Concomitant]
     Active Substance: FAMOTIDINE
  9. FOLIC ACID [Concomitant]
     Active Substance: FOLIC ACID
  10. FUROSEMIDE [Concomitant]
     Active Substance: FUROSEMIDE
  11. IRBESARTAN [Concomitant]
     Active Substance: IRBESARTAN
  12. LEVAQUIN [Concomitant]
     Active Substance: LEVOFLOXACIN
  13. LEVOTHYROXINE [Concomitant]
     Active Substance: LEVOTHYROXINE
  14. LOOTIL [Concomitant]
  15. LOPERAMIDE [Concomitant]
     Active Substance: LOPERAMIDE
  16. LOVASTATIN [Concomitant]
     Active Substance: LOVASTATIN
  17. METOPROLOL [Concomitant]
     Active Substance: METOPROLOL
  18. PANTOPRAZOLE [Concomitant]
     Active Substance: PANTOPRAZOLE
  19. PROCHLORPERAZINE [Concomitant]
     Active Substance: PROCHLORPERAZINE
  20. SIMETHICONE (DIMETHICONE) [Concomitant]
     Active Substance: DIMETHICONE
  21. VALIUM [Concomitant]
     Active Substance: DIAZEPAM
  22. VITAMIN B12 [Concomitant]
     Active Substance: CYANOCOBALAMIN
  23. VITAMIN C [Concomitant]
     Active Substance: ASCORBIC ACID
  24. ZOFRAN [Concomitant]
     Active Substance: ONDANSETRON HYDROCHLORIDE

REACTIONS (1)
  - Hospitalisation [None]
